FAERS Safety Report 9961661 (Version 1)
Quarter: 2014Q1

REPORT INFORMATION
  Report Type: Report from Study
  Country: US (occurrence: US)
  Receive Date: 20140305
  Receipt Date: 20140305
  Transmission Date: 20141002
  Serious: No
  Sender: FDA-Public Use
  Company Number: US-ABBVIE-13P-163-1111102-00

PATIENT
  Sex: Female

DRUGS (11)
  1. HUMIRA [Suspect]
     Indication: PSORIASIS
     Dates: start: 20130212
  2. OLEUX FOAM [Concomitant]
     Indication: SKIN DISORDER
  3. SORILUX [Concomitant]
     Indication: SKIN DISORDER
  4. DOLOVENT VITAMIN [Concomitant]
     Indication: MIGRAINE
  5. EYE DROPS [Concomitant]
     Indication: DRY EYE
  6. MAXALT [Concomitant]
     Indication: MIGRAINE
  7. ZOFRAN [Concomitant]
     Indication: MIGRAINE
     Route: 048
  8. ZOFRAN [Concomitant]
     Indication: NAUSEA
  9. ERRIN [Concomitant]
     Indication: CONTRACEPTION
     Dosage: DAILY
     Route: 048
  10. ERRIN [Concomitant]
     Indication: MENSTRUAL CYCLE MANAGEMENT
  11. ERRIN [Concomitant]
     Indication: MIGRAINE

REACTIONS (1)
  - Migraine [Not Recovered/Not Resolved]
